FAERS Safety Report 4594367-1 (Version None)
Quarter: 2005Q1

REPORT INFORMATION
  Report Type: 
  Country: None (occurrence: None)
  Receive Date: 20050301
  Receipt Date: 20041201
  Transmission Date: 20050727
  Serious: No
  Sender: FDA-Public Use
  Company Number: US-GLAXOSMITHKLINE-A0535789A

PATIENT
  Age: 61 Year
  Sex: Female

DRUGS (5)
  1. VALTREX [Suspect]
     Indication: HERPES ZOSTER
     Dosage: 500MG THREE TIMES PER DAY
     Route: 048
     Dates: start: 20041026
  2. TYLENOL W/ CODEINE [Concomitant]
  3. EXTRA STRENGTH TYLENOL [Concomitant]
  4. NATURAL VITAMIN E [Concomitant]
  5. VITAMIN C [Concomitant]

REACTIONS (2)
  - BLISTER [None]
  - PAROSMIA [None]
